FAERS Safety Report 10234246 (Version 2)
Quarter: 2014Q2

REPORT INFORMATION
  Report Type: Spontaneous
  Country: US (occurrence: US)
  Receive Date: 20140612
  Receipt Date: 20140618
  Transmission Date: 20141212
  Serious: Yes (Other)
  Sender: FDA-Public Use
  Company Number: CHPA2014US007826

PATIENT
  Age: 63 Year
  Sex: Female

DRUGS (2)
  1. VOLTAREN GEL [Suspect]
     Indication: ARTHRALGIA
     Dosage: 4 G, QID
     Route: 061
     Dates: start: 20140604
  2. VOLTAREN GEL [Suspect]
     Indication: OFF LABEL USE

REACTIONS (1)
  - Depression [Not Recovered/Not Resolved]
